FAERS Safety Report 5195473-3 (Version None)
Quarter: 2007Q1

REPORT INFORMATION
  Report Type: 
  Country: None (occurrence: None)
  Receive Date: 20070102
  Receipt Date: 20061226
  Transmission Date: 20070707
  Serious: Yes (Disabling, Other)
  Sender: FDA-Public Use
  Company Number: JP-SP-2006-02581

PATIENT
  Age: 59 Year
  Sex: Male

DRUGS (4)
  1. IMMUCYST [Suspect]
     Indication: BLADDER CANCER STAGE I, WITHOUT CANCER IN SITU
     Route: 043
     Dates: start: 20060719, end: 20060809
  2. IMMUCYST [Suspect]
     Route: 043
     Dates: start: 20060719, end: 20060809
  3. GLICLAZIDE [Concomitant]
     Route: 048
     Dates: start: 20060116
  4. METFORMIN HYDROCHLORIDE [Concomitant]
     Route: 048
     Dates: start: 20060116

REACTIONS (3)
  - CONTRACTED BLADDER [None]
  - POLLAKIURIA [None]
  - PYREXIA [None]
